FAERS Safety Report 5860728-3 (Version None)
Quarter: 2008Q3

REPORT INFORMATION
  Report Type: 
  Country: None (occurrence: None)
  Receive Date: 20080827
  Receipt Date: 20071128
  Transmission Date: 20090109
  Serious: No
  Sender: FDA-Public Use
  Company Number: US-ABBOTT-07P-163-0426889-00

PATIENT
  Sex: Female
  Weight: 80.812 kg

DRUGS (3)
  1. NIASPAN [Suspect]
     Indication: HIGH DENSITY LIPOPROTEIN DECREASED
     Dosage: WHITE
     Route: 048
     Dates: start: 20070801
  2. NIASPAN [Suspect]
     Dosage: ORANGE
     Route: 048
     Dates: start: 20061101, end: 20070801
  3. MULTI-VITAMIN [Suspect]
     Indication: DRUG USE FOR UNKNOWN INDICATION
     Route: 048
     Dates: start: 20071125, end: 20071125

REACTIONS (2)
  - FLUSHING [None]
  - PRURITUS [None]
